FAERS Safety Report 5592428-1 (Version None)
Quarter: 2008Q1

REPORT INFORMATION
  Report Type: 
  Country: None (occurrence: None)
  Receive Date: 20080115
  Receipt Date: 20080103
  Transmission Date: 20080703
  Serious: Yes (Life-Threatening, Hospitalization, Other)
  Sender: FDA-Public Use
  Company Number: FR-PFIZER INC-2008001742

PATIENT
  Age: 95 Year
  Sex: Female

DRUGS (3)
  1. LYRICA [Suspect]
     Indication: HERPES ZOSTER
  2. LASIX [Suspect]
  3. SKENAN [Concomitant]

REACTIONS (6)
  - BRAIN HYPOXIA [None]
  - DYSPNOEA [None]
  - ENCEPHALOPATHY [None]
  - HYPERKALAEMIA [None]
  - HYPONATRAEMIA [None]
  - PULMONARY HYPERTENSION [None]
